FAERS Safety Report 7318835-4 (Version None)
Quarter: 2011Q1

REPORT INFORMATION
  Report Type: 
  Country: None (occurrence: None)
  Receive Date: 20110228
  Receipt Date: 20100816
  Transmission Date: 20110831
  Serious: No
  Sender: FDA-Public Use
  Company Number: A0877502A

PATIENT
  Sex: Female

DRUGS (2)
  1. SYNTHROID [Concomitant]
  2. IMITREX [Suspect]
     Indication: MIGRAINE PROPHYLAXIS
     Route: 065
     Dates: start: 20100101, end: 20100629

REACTIONS (4)
  - FATIGUE [None]
  - SEDATION [None]
  - PERFORMANCE STATUS DECREASED [None]
  - IMPAIRED DRIVING ABILITY [None]
